FAERS Safety Report 13355887 (Version 2)
Quarter: 2018Q1

REPORT INFORMATION
  Report Type: Spontaneous
  Country: IT (occurrence: IT)
  Receive Date: 20170321
  Receipt Date: 20180216
  Transmission Date: 20180508
  Serious: Yes (Hospitalization)
  Sender: FDA-Public Use
  Company Number: IT-ELI_LILLY_AND_COMPANY-IT201703005540

PATIENT
  Age: 49 Year
  Sex: Female

DRUGS (4)
  1. GLICLAZIDE [Suspect]
     Active Substance: GLICLAZIDE
     Indication: INTENTIONAL SELF-INJURY
     Dosage: 360 MG, TOTAL
     Route: 048
     Dates: start: 20151106, end: 20151106
  2. CYMBALTA [Suspect]
     Active Substance: DULOXETINE HYDROCHLORIDE
     Indication: INTENTIONAL SELF-INJURY
     Dosage: 180 MG, TOTAL
     Route: 048
     Dates: start: 20151106, end: 20151106
  3. HALDOL [Concomitant]
     Active Substance: HALOPERIDOL
     Indication: PRODUCT USED FOR UNKNOWN INDICATION
     Dosage: 10 GTT, UNKNOWN
     Route: 048
  4. RIVOTRIL [Concomitant]
     Active Substance: CLONAZEPAM
     Indication: PRODUCT USED FOR UNKNOWN INDICATION
     Dosage: 10 GTT, UNKNOWN
     Route: 048

REACTIONS (3)
  - Intentional self-injury [Recovering/Resolving]
  - Overdose [Recovered/Resolved]
  - Confusional state [Recovering/Resolving]

NARRATIVE: CASE EVENT DATE: 20151106
